FAERS Safety Report 5325030-7 (Version None)
Quarter: 2007Q2

REPORT INFORMATION
  Report Type: 
  Country: None (occurrence: None)
  Receive Date: 20070515
  Receipt Date: 20070511
  Transmission Date: 20071010
  Serious: Yes (Hospitalization)
  Sender: FDA-Public Use
  Company Number: DE-BRISTOL-MYERS SQUIBB COMPANY-13776877

PATIENT
  Sex: Female
  Weight: 55 kg

DRUGS (2)
  1. TAXOL [Suspect]
     Indication: BREAST CANCER
     Dates: start: 20070504, end: 20070504
  2. XELODA [Suspect]
     Indication: BREAST CANCER
     Dates: start: 20070504, end: 20070504

REACTIONS (3)
  - PYREXIA [None]
  - STOMATITIS [None]
  - TONGUE ULCERATION [None]
